FAERS Safety Report 8064434-9 (Version None)
Quarter: 2012Q1

REPORT INFORMATION
  Report Type: 
  Country: None (occurrence: None)
  Receive Date: 20120123
  Receipt Date: 20120119
  Transmission Date: 20120608
  Serious: Yes (Hospitalization, Other)
  Sender: FDA-Public Use
  Company Number: US-PFIZER INC-2011101765

PATIENT
  Sex: Female
  Weight: 52.608 kg

DRUGS (5)
  1. LYRICA [Suspect]
     Dosage: 75 MG, 2X/DAY
     Dates: start: 20110101
  2. LYRICA [Suspect]
     Dosage: 75 MG UNK
     Route: 048
  3. LYRICA [Suspect]
     Indication: NEUROPATHY PERIPHERAL
     Dosage: 50 MG, 2X/DAY
     Route: 048
     Dates: end: 20110101
  4. ACETYLSALICYLIC ACID [Concomitant]
     Dosage: UNK
  5. ATENOLOL [Concomitant]
     Indication: BLOOD PRESSURE ABNORMAL
     Dosage: UNK

REACTIONS (5)
  - MYOCARDIAL INFARCTION [None]
  - NASOPHARYNGITIS [None]
  - ATRIAL FIBRILLATION [None]
  - DYSGRAPHIA [None]
  - RESPIRATORY THERAPY [None]
